FAERS Safety Report 21571104 (Version 1)
Quarter: 2022Q4

REPORT INFORMATION
  Report Type: Spontaneous
  Country: US (occurrence: None)
  Receive Date: 20221107
  Receipt Date: 20221107
  Transmission Date: 20230113
  Serious: No
  Sender: FDA-Public Use
  Company Number: None

PATIENT
  Sex: Female

DRUGS (1)
  1. STELARA [Suspect]
     Active Substance: USTEKINUMAB
     Indication: Psoriasis
     Dosage: OTHER QUANTITY : 45/0.5 MG/ML;?OTHER FREQUENCY : EVERY 12 WEEKS;?
     Dates: start: 20220608

REACTIONS (3)
  - Pruritus [None]
  - Burning sensation [None]
  - Pain [None]
